FAERS Safety Report 7690233-3 (Version None)
Quarter: 2011Q3

REPORT INFORMATION
  Report Type: 
  Country: None (occurrence: None)
  Receive Date: 20110818
  Receipt Date: 20110815
  Transmission Date: 20111222
  Serious: Yes (Other)
  Sender: FDA-Public Use
  Company Number: US-PFIZER INC-2011187957

PATIENT
  Sex: Female
  Weight: 68 kg

DRUGS (2)
  1. PREMARIN [Suspect]
     Dosage: 1.25 MG, 1X/DAY
     Dates: start: 19820101
  2. PREMARIN [Suspect]
     Indication: OESTROGEN REPLACEMENT THERAPY
     Dosage: 0.265 MG, 1X/DAY
     Route: 048
     Dates: start: 19820101

REACTIONS (5)
  - SOMNOLENCE [None]
  - NERVOUSNESS [None]
  - ANXIETY [None]
  - BLOOD PRESSURE ABNORMAL [None]
  - HOT FLUSH [None]
